FAERS Safety Report 17768673 (Version 1)
Quarter: 2020Q2

REPORT INFORMATION
  Report Type: Spontaneous
  Country: US (occurrence: US)
  Receive Date: 20200512
  Receipt Date: 20200512
  Transmission Date: 20200714
  Serious: No
  Sender: FDA-Public Use
  Company Number: US-JNJFOC-20200408570

PATIENT
  Age: 79 Year
  Sex: Female

DRUGS (1)
  1. PEPCID AC MAXIMUM STRENGTH [Suspect]
     Active Substance: FAMOTIDINE
     Indication: HERNIA
     Dosage: 1 OR 2 ONCE A DAY; LAST ADMIN DATE /FEB/2020
     Route: 048
     Dates: start: 201912

REACTIONS (2)
  - Product use in unapproved indication [Unknown]
  - Frequent bowel movements [Recovering/Resolving]

NARRATIVE: CASE EVENT DATE: 201912
